FAERS Safety Report 6713328-7 (Version None)
Quarter: 2010Q2

REPORT INFORMATION
  Report Type: 
  Country: None (occurrence: None)
  Receive Date: 20100506
  Receipt Date: 20100426
  Transmission Date: 20101027
  Serious: No
  Sender: FDA-Public Use
  Company Number: JP-ELI_LILLY_AND_COMPANY-JP201004004904

PATIENT
  Age: 65 Year
  Sex: Male

DRUGS (2)
  1. GEMZAR [Suspect]
     Indication: BILE DUCT CANCER
     Dosage: 1000 MG, OTHER
     Route: 042
  2. TS 1 [Concomitant]
     Indication: BILE DUCT CANCER
     Dosage: 120 MG, OTHER
     Route: 048

REACTIONS (1)
  - CARDIAC FAILURE [None]
